FAERS Safety Report 11254494 (Version 3)
Quarter: 2015Q3

REPORT INFORMATION
  Report Type: Spontaneous
  Country: US (occurrence: US)
  Receive Date: 20150709
  Receipt Date: 20150825
  Transmission Date: 20151125
  Serious: No
  Sender: FDA-Public Use
  Company Number: US-PFIZER INC-2015225537

PATIENT
  Age: 79 Year
  Sex: Male

DRUGS (2)
  1. LATANOPROST. [Suspect]
     Active Substance: LATANOPROST
     Dosage: 1 GTT, 1X/DAY (LEFT EYE, AT BED TIME)
  2. LATANOPROST. [Suspect]
     Active Substance: LATANOPROST
     Dosage: 1 GTT, 1X/DAY (LEFT EYE, AT BED TIME)

REACTIONS (3)
  - Incorrect dose administered [Unknown]
  - Eye irritation [Unknown]
  - Product quality issue [Unknown]
